FAERS Safety Report 19710827 (Version 1)
Quarter: 2021Q3

REPORT INFORMATION
  Report Type: Spontaneous
  Country: JP (occurrence: JP)
  Receive Date: 20210816
  Receipt Date: 20210816
  Transmission Date: 20211014
  Serious: No
  Sender: FDA-Public Use
  Company Number: JP-ALLERGAN-2127992US

PATIENT
  Sex: Male

DRUGS (1)
  1. ASENAPINE MALEATE ? BP [Suspect]
     Active Substance: ASENAPINE MALEATE
     Indication: PRODUCT USED FOR UNKNOWN INDICATION
     Dosage: 1 DF
     Route: 060

REACTIONS (6)
  - Confusional state [Unknown]
  - Vision blurred [Unknown]
  - Dyspnoea [Unknown]
  - Malaise [Unknown]
  - Hypoaesthesia [Unknown]
  - Psychiatric symptom [Unknown]
